FAERS Safety Report 6983957-4 (Version None)
Quarter: 2010Q3

REPORT INFORMATION
  Report Type: 
  Country: None (occurrence: None)
  Receive Date: 20100914
  Receipt Date: 20090428
  Transmission Date: 20110219
  Serious: No
  Sender: FDA-Public Use
  Company Number: US-WYE-H09159309

PATIENT
  Age: 60 Year
  Sex: Female
  Weight: 83.99 kg

DRUGS (4)
  1. ADVIL PM [Suspect]
     Indication: PAIN
     Dosage: 1 CAPLET AS NEEDED
     Route: 048
     Dates: start: 20090101, end: 20090101
  2. ADVIL PM [Suspect]
     Indication: INSOMNIA
     Dosage: UNKNOWN
     Route: 048
     Dates: start: 20090427
  3. HYDROCHLOROTHIAZIDE [Concomitant]
  4. DIOVAN [Concomitant]

REACTIONS (2)
  - DIZZINESS [None]
  - NIGHTMARE [None]
